FAERS Safety Report 6934925-X (Version None)
Quarter: 2010Q3

REPORT INFORMATION
  Report Type: 
  Country: None (occurrence: None)
  Receive Date: 20100821
  Receipt Date: 20100810
  Transmission Date: 20110219
  Serious: Yes (Other)
  Sender: FDA-Public Use
  Company Number: GXKR2010FR08966

PATIENT
  Age: 55 Year
  Sex: Male

DRUGS (6)
  1. MONTELUKAST SODIUM (NGX) [Suspect]
     Indication: ASTHMA
     Route: 065
  2. PREDNISONE (NGX) [Suspect]
     Indication: ASTHMA
     Dosage: 20 MG/DAY
     Route: 048
  3. PREDNISONE (NGX) [Suspect]
     Dosage: 0.5 MG/KG/DAY
     Route: 048
  4. DRUGS FOR OBSTRUCTIVE AIRWAY DISEASES [Suspect]
     Indication: ASTHMA
     Route: 065
  5. STEROIDS NOS [Concomitant]
     Indication: ASTHMA
  6. SELECTIVE BETA-2-ADRENORECEPTOR AGONISTS [Concomitant]
     Indication: ASTHMA
     Route: 065

REACTIONS (12)
  - ALLERGIC GRANULOMATOUS ANGIITIS [None]
  - ANGIOEDEMA [None]
  - DERMATOSIS [None]
  - EOSINOPHILIA [None]
  - FATIGUE [None]
  - INFLAMMATION [None]
  - MUSCLE ENZYME INCREASED [None]
  - MYALGIA [None]
  - PARAESTHESIA [None]
  - SINUSITIS [None]
  - URTICARIA [None]
  - VASCULITIS [None]
